FAERS Safety Report 14033275 (Version 1)
Quarter: 2017Q4

REPORT INFORMATION
  Report Type: Spontaneous
  Country: US (occurrence: US)
  Receive Date: 20171002
  Receipt Date: 20171002
  Transmission Date: 20180321
  Serious: Yes (Life-Threatening, Hospitalization, Disabling)
  Sender: FDA-Public Use
  Company Number: None

PATIENT
  Sex: Male
  Weight: 90 kg

DRUGS (1)
  1. CIPROFLAXICIN [Suspect]
     Active Substance: CIPROFLOXACIN
     Indication: URINARY TRACT INFECTION
     Dosage: ?          QUANTITY:24 TABLET(S);?
     Route: 048
     Dates: start: 20170113, end: 20170823

REACTIONS (10)
  - Anaphylactic shock [None]
  - Hypoaesthesia [None]
  - Myalgia [None]
  - Chest pain [None]
  - Bedridden [None]
  - Dyspnoea [None]
  - Fatigue [None]
  - Paraesthesia [None]
  - Chest discomfort [None]
  - Panic attack [None]

NARRATIVE: CASE EVENT DATE: 20170823
